FAERS Safety Report 7881056-0 (Version None)
Quarter: 2011Q4

REPORT INFORMATION
  Report Type: 
  Country: None (occurrence: None)
  Receive Date: 20111101
  Receipt Date: 20110602
  Transmission Date: 20120403
  Serious: No
  Sender: FDA-Public Use
  Company Number: US-AMGEN-USASP2011028494

PATIENT
  Age: 72 Year
  Sex: Female
  Weight: 64.399 kg

DRUGS (19)
  1. FOLIC ACID [Concomitant]
     Dosage: 1 MG, UNK
  2. VASOTEC [Concomitant]
     Dosage: 5 MG, UNK
  3. PRILOSEC [Concomitant]
     Dosage: 20 MG, UNK
  4. PREDNISONE [Concomitant]
  5. LEXAPRO [Concomitant]
     Dosage: 20 MG, UNK
  6. GELNIQUE [Concomitant]
     Dosage: 10 %, UNK
  7. ENBREL [Suspect]
     Indication: PRODUCT USED FOR UNKNOWN INDICATION
     Dosage: 50 MG, QWK
     Route: 058
  8. AMBIEN [Concomitant]
     Dosage: 10 MG, UNK
  9. SINGULAIR [Concomitant]
     Dosage: 10 MG, UNK
  10. METHOTREXATE [Concomitant]
     Dosage: 2.5 MG, UNK
  11. PLAQUENIL [Concomitant]
     Dosage: 200 MG, UNK
  12. AMLODIPINE [Concomitant]
     Dosage: 2.5 MG, UNK
  13. MIRALAX [Concomitant]
  14. PROVIGIL [Concomitant]
     Dosage: 100 MG, UNK
  15. LIDOCAINE [Concomitant]
     Dosage: 4 %, UNK
  16. VICODIN [Concomitant]
     Dosage: 5 UNK, UNK
  17. METHADONE HCL [Concomitant]
     Dosage: 5 MG, UNK
  18. BUSPIRONE [Concomitant]
     Dosage: 15 MG, UNK
  19. CELEBREX [Concomitant]
     Dosage: 200 MG, UNK

REACTIONS (2)
  - CANDIDIASIS [None]
  - STAPHYLOCOCCAL INFECTION [None]
